FAERS Safety Report 24598267 (Version 2)
Quarter: 2025Q3

REPORT INFORMATION
  Report Type: Spontaneous
  Country: EU (occurrence: EU)
  Receive Date: 20241110
  Receipt Date: 20250809
  Transmission Date: 20251021
  Serious: Yes (Life-Threatening, Hospitalization, Other)
  Sender: ALEXION PHARMACEUTICALS
  Company Number: EU-ASTRAZENECA-202410GLO029420FR

PATIENT
  Age: 72 Year
  Sex: Male
  Weight: 82.5 kg

DRUGS (12)
  1. DAPAGLIFLOZIN [Interacting]
     Active Substance: DAPAGLIFLOZIN
     Dosage: 1 DOSAGE FORM, QD
     Dates: end: 20241008
  2. RAMIPRIL [Interacting]
     Active Substance: RAMIPRIL
     Dosage: 1.25 MILLIGRAM, QD
     Dates: start: 20240910, end: 20241001
  3. RAMIPRIL [Interacting]
     Active Substance: RAMIPRIL
     Dosage: 2.5 MILLIGRAM, QD
     Dates: start: 20241002, end: 20241008
  4. FUROSEMIDE [Interacting]
     Active Substance: FUROSEMIDE
     Indication: Hypertension
     Dosage: 500 MILLIGRAM, QD
     Dates: end: 20241008
  5. SPIRONOLACTONE [Interacting]
     Active Substance: SPIRONOLACTONE
     Dosage: 25 MILLIGRAM, QD
     Dates: end: 20241008
  6. ATORVASTATIN [Concomitant]
     Active Substance: ATORVASTATIN
     Dates: end: 20241008
  7. SITAGLIPTIN [Concomitant]
     Active Substance: SITAGLIPTIN
     Dates: end: 20241008
  8. ELIQUIS [Concomitant]
     Active Substance: APIXABAN
     Dates: end: 20241008
  9. AMIODARONE [Concomitant]
     Active Substance: AMIODARONE
     Dates: end: 20241008
  10. LANSOPRAZOLE [Concomitant]
     Active Substance: LANSOPRAZOLE
     Dates: end: 20241008
  11. ALBUTEROL [Concomitant]
     Active Substance: ALBUTEROL
     Dates: end: 20241008
  12. TRELEGY ELLIPTA [Concomitant]
     Active Substance: FLUTICASONE FUROATE\UMECLIDINIUM BROMIDE\VILANTEROL TRIFENATATE
     Dates: end: 20241008

REACTIONS (3)
  - Hypotension [Recovering/Resolving]
  - Hypovolaemic shock [Recovered/Resolved]
  - Drug interaction [Recovered/Resolved]

NARRATIVE: CASE EVENT DATE: 20241008
